FAERS Safety Report 4876723-7 (Version None)
Quarter: 2006Q1

REPORT INFORMATION
  Report Type: 
  Country: None (occurrence: None)
  Receive Date: 20060110
  Receipt Date: 20051230
  Transmission Date: 20060701
  Serious: Yes (Hospitalization, Disabling, Other)
  Sender: FDA-Public Use
  Company Number: US-MERCK-0601USA00157

PATIENT
  Age: 47 Year
  Sex: Male
  Weight: 55 kg

DRUGS (3)
  1. VIOXX [Suspect]
     Indication: RHEUMATOID ARTHRITIS
     Route: 048
     Dates: start: 20000101, end: 20030201
  2. VIOXX [Suspect]
     Indication: INFLAMMATION
     Route: 048
     Dates: start: 20000101, end: 20030201
  3. TYLENOL [Concomitant]
     Route: 065

REACTIONS (8)
  - ARTERIAL REPAIR [None]
  - BACK DISORDER [None]
  - CARDIAC DISORDER [None]
  - DEPRESSION [None]
  - FATIGUE [None]
  - GASTRIC DISORDER [None]
  - MYOCARDIAL INFARCTION [None]
  - ULCER HAEMORRHAGE [None]
